FAERS Safety Report 9244824 (Version 1)
Quarter: 2013Q1

REPORT INFORMATION
  Report Type: Spontaneous
  Country: US (occurrence: None)
  Receive Date: 20121130
  Receipt Date: 20121130
  Transmission Date: 20140127
  Serious: Yes (Hospitalization, Other)
  Sender: FDA-Public Use
  Company Number: US201208006506

PATIENT
  Age: 59 Year
  Sex: Male

DRUGS (1)
  1. BYDUREON [Suspect]
     Route: 058
     Dates: start: 20120502

REACTIONS (4)
  - Renal failure [None]
  - Malaise [None]
  - Nausea [None]
  - Vomiting [None]
